FAERS Safety Report 6118604-7 (Version None)
Quarter: 2009Q1

REPORT INFORMATION
  Report Type: 
  Country: None (occurrence: None)
  Receive Date: 20090314
  Receipt Date: 20090220
  Transmission Date: 20090719
  Serious: No
  Sender: FDA-Public Use
  Company Number: US-ABBOTT-09P-163-0558947-00

PATIENT
  Sex: Female
  Weight: 96.248 kg

DRUGS (13)
  1. HUMIRA [Suspect]
     Indication: PSORIATIC ARTHROPATHY
     Route: 058
     Dates: start: 20080401
  2. MEDROL [Concomitant]
     Indication: PSORIATIC ARTHROPATHY
     Dosage: TAPERING DOSE
     Route: 048
     Dates: start: 20081001
  3. MEDROL [Concomitant]
     Indication: PSORIASIS
  4. ALDACTAZIDE [Concomitant]
     Indication: HYPERTENSION
     Dosage: 25/25
     Route: 048
  5. ATENOLOL [Concomitant]
     Indication: BLOOD PRESSURE
     Route: 048
  6. AMBIEN [Concomitant]
     Indication: INSOMNIA
     Dosage: UNSURE OF STRENGTH
     Route: 048
  7. ATARAX [Concomitant]
     Indication: PRURITUS
     Route: 048
  8. ACIPHEX [Concomitant]
     Indication: GASTROOESOPHAGEAL REFLUX DISEASE
     Route: 048
  9. DARVOCET-N 100 [Concomitant]
     Indication: PSORIATIC ARTHROPATHY
     Route: 048
  10. DARVOCET-N 100 [Concomitant]
     Indication: PAIN
  11. NEURONTIN [Concomitant]
     Indication: BACK INJURY
     Route: 048
  12. CLARINEX [Concomitant]
     Indication: HYPERSENSITIVITY
     Route: 048
  13. BENTYL [Concomitant]
     Indication: IRRITABLE BOWEL SYNDROME

REACTIONS (5)
  - ALOPECIA [None]
  - BLOOD MERCURY ABNORMAL [None]
  - GLUCOSE TOLERANCE IMPAIRED [None]
  - PSORIASIS [None]
  - URINARY TRACT INFECTION [None]
